FAERS Safety Report 8806747 (Version 2)
Quarter: 2012Q4

REPORT INFORMATION
  Report Type: 
  Country: GB (occurrence: GB)
  Receive Date: 20120925
  Receipt Date: 20121004
  Transmission Date: 20130627
  Serious: Yes (Other)
  Sender: FDA-Public Use
  Company Number: PHHY2012GB081687

PATIENT
  Age: 78 Year
  Sex: Female
  Weight: 50 kg

DRUGS (6)
  1. RISPERIDONE [Suspect]
     Indication: SCHIZOPHRENIA
     Dosage: 2 mg, BID
     Route: 048
  2. RISPERIDONE [Suspect]
     Dosage: 1 mg, BID
     Route: 048
     Dates: start: 20120606
  3. RISPERIDONE [Suspect]
     Dosage: 0.5 mg, BID
     Route: 048
  4. PALIPERIDONE PALMITATE [Suspect]
     Indication: SCHIZOPHRENIA
     Dosage: 100 mg, UNK
     Route: 030
     Dates: start: 20120518
  5. PALIPERIDONE PALMITATE [Suspect]
     Dosage: 75 mg, UNK
     Route: 030
     Dates: start: 20120525
  6. PALIPERIDONE PALMITATE [Suspect]
     Dosage: 100 mg, UNK
     Route: 030
     Dates: start: 20120615

REACTIONS (5)
  - Renal impairment [Unknown]
  - Psychotic disorder [Not Recovered/Not Resolved]
  - Incorrect dose administered [Unknown]
  - Inappropriate schedule of drug administration [Unknown]
  - Drug ineffective [Unknown]
